FAERS Safety Report 7426868-2 (Version None)
Quarter: 2011Q2

REPORT INFORMATION
  Report Type: 
  Country: None (occurrence: None)
  Receive Date: 20110420
  Receipt Date: 20110405
  Transmission Date: 20111010
  Serious: Yes (Hospitalization)
  Sender: FDA-Public Use
  Company Number: US-CELGENEUS-163-21880-11040824

PATIENT
  Sex: Female

DRUGS (5)
  1. ZETIA [Concomitant]
     Route: 065
  2. CELEBREX [Concomitant]
     Route: 065
  3. FOSAMAX [Concomitant]
     Route: 065
  4. REVLIMID [Suspect]
     Dosage: 15 MILLIGRAM
     Route: 048
     Dates: start: 20101008
  5. REVLIMID [Suspect]
     Indication: MULTIPLE MYELOMA
     Dosage: 25 MILLIGRAM
     Route: 048
     Dates: start: 20090101

REACTIONS (3)
  - THROMBOSIS [None]
  - OEDEMA PERIPHERAL [None]
  - SKIN ULCER [None]
